FAERS Safety Report 13513389 (Version 2)
Quarter: 2017Q2

REPORT INFORMATION
  Report Type: Spontaneous
  Country: SE (occurrence: SE)
  Receive Date: 20170504
  Receipt Date: 20170606
  Transmission Date: 20170830
  Serious: Yes (Hospitalization, Other)
  Sender: FDA-Public Use
  Company Number: SE-PFIZER INC-2017187442

PATIENT
  Age: 64 Year
  Sex: Male

DRUGS (16)
  1. STESOLID [Concomitant]
     Active Substance: DIAZEPAM
     Dosage: UNK
  2. CIPROFLOXACIN ACCORD [Concomitant]
     Dosage: UNK
  3. COMTESS [Concomitant]
     Active Substance: ENTACAPONE
     Dosage: UNK
  4. TRADOLAN [Concomitant]
     Active Substance: TRAMADOL
     Dosage: UNK
  5. ACIKLOVIR STADA [Concomitant]
     Dosage: UNK
  6. DOMPERIDON EBB [Concomitant]
     Dosage: UNK
  7. MADOPARK [Concomitant]
     Active Substance: BENSERAZIDE HYDROCHLORIDE\LEVODOPA
     Dosage: UNK
  8. DEXAMETHASONE. [Suspect]
     Active Substance: DEXAMETHASONE
     Indication: B PRECURSOR TYPE ACUTE LEUKAEMIA
     Dosage: UNK
  9. AKINETON [Concomitant]
     Active Substance: BIPERIDEN HYDROCHLORIDE
     Dosage: UNK
  10. PROPAVAN [Concomitant]
     Active Substance: PROPIOMAZINE
     Dosage: UNK
  11. METOPROLOL ORION [Concomitant]
     Active Substance: METOPROLOL
     Dosage: UNK
  12. CYTARABINE. [Suspect]
     Active Substance: CYTARABINE
     Indication: B PRECURSOR TYPE ACUTE LEUKAEMIA
     Dosage: UNK
     Dates: start: 20141209
  13. GLIVEC [Suspect]
     Active Substance: IMATINIB MESYLATE
     Indication: B PRECURSOR TYPE ACUTE LEUKAEMIA
     Dosage: 600 MG, DAILY
     Route: 048
     Dates: start: 20141211, end: 20150420
  14. CYKLOKAPRON [Concomitant]
     Active Substance: TRANEXAMIC ACID
     Dosage: UNK
  15. FURIX [Concomitant]
     Active Substance: FUROSEMIDE
     Dosage: UNK
  16. ZAVEDOS [Suspect]
     Active Substance: IDARUBICIN
     Indication: B PRECURSOR TYPE ACUTE LEUKAEMIA
     Dosage: UNK
     Dates: start: 20141209

REACTIONS (2)
  - Agranulocytosis [Recovered/Resolved]
  - Febrile neutropenia [Recovered/Resolved]

NARRATIVE: CASE EVENT DATE: 20141227
